FAERS Safety Report 20302216 (Version 1)
Quarter: 2022Q1

REPORT INFORMATION
  Report Type: Spontaneous
  Country: SI (occurrence: SI)
  Receive Date: 20220106
  Receipt Date: 20220106
  Transmission Date: 20220423
  Serious: Yes (Other)
  Sender: FDA-Public Use
  Company Number: SI-ROCHE-2978639

PATIENT
  Age: 59 Year
  Sex: Female

DRUGS (15)
  1. BEVACIZUMAB [Suspect]
     Active Substance: BEVACIZUMAB
     Indication: Hepatocellular carcinoma
     Dosage: 15 MILLIGRAM/KILOGRAM, Q3WK
     Route: 041
  2. ATEZOLIZUMAB [Suspect]
     Active Substance: ATEZOLIZUMAB
     Indication: Hepatocellular carcinoma
     Dosage: 1200 MILLIGRAM, Q3WK
     Route: 041
  3. TREMELIMUMAB [Concomitant]
     Active Substance: TREMELIMUMAB
     Dosage: UNK
  4. NIVOLUMAB [Concomitant]
     Active Substance: NIVOLUMAB
     Dosage: UNK
  5. SORAFENIB [Concomitant]
     Active Substance: SORAFENIB
     Dosage: 400 MG BID
  6. LENVATINIB [Concomitant]
     Active Substance: LENVATINIB
     Dosage: UNK
  7. DURVALUMAB [Concomitant]
     Active Substance: DURVALUMAB
     Dosage: UNK
  8. BRIVANIB [Concomitant]
     Active Substance: BRIVANIB
     Dosage: UNK
  9. REGORAFENIB [Concomitant]
     Active Substance: REGORAFENIB
     Dosage: UNK
  10. DOXORUBICIN [Concomitant]
     Active Substance: DOXORUBICIN
     Dosage: UNK
  11. DONAFENIB [Concomitant]
     Dosage: UNK
  12. CAROTUXIMAB [Concomitant]
     Active Substance: CAROTUXIMAB
     Dosage: UNK
  13. LINIFANIB [Concomitant]
     Active Substance: LINIFANIB
     Dosage: UNK
  14. SUNITINIB [Concomitant]
     Active Substance: SUNITINIB
     Dosage: UNK
  15. PEMBROLIZUMAB [Concomitant]
     Active Substance: PEMBROLIZUMAB

REACTIONS (3)
  - Liver disorder [Unknown]
  - Off label use [Unknown]
  - Therapy partial responder [Unknown]
